FAERS Safety Report 13776378 (Version 1)
Quarter: 2017Q3

REPORT INFORMATION
  Report Type: Spontaneous
  Country: PL (occurrence: PL)
  Receive Date: 20170720
  Receipt Date: 20170720
  Transmission Date: 20171127
  Serious: Yes (Other)
  Sender: FDA-Public Use
  Company Number: PHHY2017PL102638

PATIENT
  Age: 45 Year
  Sex: Male

DRUGS (4)
  1. SIMVASTATIN. [Suspect]
     Active Substance: SIMVASTATIN
     Indication: HYPERCHOLESTEROLAEMIA
     Dosage: 20 MG, UNK
     Route: 065
  2. NEBIVOLOL. [Concomitant]
     Active Substance: NEBIVOLOL
     Indication: PRODUCT USED FOR UNKNOWN INDICATION
     Dosage: 5 MG, UNK
     Route: 065
  3. TELMISARTAN. [Concomitant]
     Active Substance: TELMISARTAN
     Indication: PRODUCT USED FOR UNKNOWN INDICATION
     Dosage: 40 MG, UNK
     Route: 065
  4. ATORVASTATIN [Concomitant]
     Active Substance: ATORVASTATIN
     Indication: PRODUCT USED FOR UNKNOWN INDICATION
     Dosage: 40 MG, UNK
     Route: 065

REACTIONS (12)
  - Obesity [Unknown]
  - Low density lipoprotein increased [Unknown]
  - Retinal drusen [Unknown]
  - Blood cholesterol increased [Unknown]
  - Mitral valve stenosis [Unknown]
  - Hypertension [Unknown]
  - Sinus tachycardia [Unknown]
  - Dyslipidaemia [Unknown]
  - Heart rate increased [Unknown]
  - Blood triglycerides increased [Unknown]
  - Hepatic steatosis [Unknown]
  - Retinopathy hypertensive [Unknown]
